FAERS Safety Report 13096882 (Version 2)
Quarter: 2017Q2

REPORT INFORMATION
  Report Type: Spontaneous
  Country: US (occurrence: US)
  Receive Date: 20170109
  Receipt Date: 20170410
  Transmission Date: 20170830
  Serious: No
  Sender: FDA-Public Use
  Company Number: US-PFIZER INC-2016604438

PATIENT
  Age: 68 Year
  Sex: Female
  Weight: 58.97 kg

DRUGS (4)
  1. RITALIN [Concomitant]
     Active Substance: METHYLPHENIDATE HYDROCHLORIDE
     Dosage: UNK
  2. METHADONE [Concomitant]
     Active Substance: METHADONE HYDROCHLORIDE
     Dosage: UNK
  3. INLYTA [Suspect]
     Active Substance: AXITINIB
     Indication: RENAL CANCER
     Dosage: 5 MG, 2X/DAY, (5 MG IN THE MORNING AND 5 MG IN THE EVENING)
     Route: 048
     Dates: start: 201610, end: 20161221
  4. GABAPENTIN. [Concomitant]
     Active Substance: GABAPENTIN
     Dosage: UNK

REACTIONS (7)
  - Oropharyngeal pain [Recovering/Resolving]
  - Dysphagia [Unknown]
  - Glossodynia [Recovering/Resolving]
  - Pain in jaw [Unknown]
  - Discomfort [Unknown]
  - Stomatitis [Unknown]
  - Eating disorder [Unknown]

NARRATIVE: CASE EVENT DATE: 2016
